FAERS Safety Report 6194541-7 (Version None)
Quarter: 2009Q2

REPORT INFORMATION
  Report Type: 
  Country: None (occurrence: None)
  Receive Date: 20090519
  Receipt Date: 20090511
  Transmission Date: 20091009
  Serious: Yes (Other)
  Sender: FDA-Public Use
  Company Number: ZA-B.I. PHARMACEUTICALS,INC./RIDGEFIELD-2009-BP-05898BP

PATIENT
  Sex: Male
  Weight: 3.5 kg

DRUGS (3)
  1. VIRAMUNE [Suspect]
     Indication: HIV INFECTION
     Dosage: 400MG
     Route: 064
     Dates: start: 20060501
  2. STAVUDINE [Suspect]
     Indication: HIV INFECTION
     Dosage: 60MG
     Route: 064
     Dates: start: 20060501
  3. LAMIVUDINE [Suspect]
     Indication: HIV INFECTION
     Dosage: 300MG
     Route: 064
     Dates: start: 20060501

REACTIONS (1)
  - EXOMPHALOS [None]
